FAERS Safety Report 8913798 (Version 1)
Quarter: 2012Q4

REPORT INFORMATION
  Report Type: Spontaneous
  Country: US (occurrence: None)
  Receive Date: 20121114
  Receipt Date: 20121114
  Transmission Date: 20130627
  Serious: No
  Sender: FDA-Public Use
  Company Number: B0843411A

PATIENT

DRUGS (4)
  1. TOPOTECAN HYDROCHLORIDE [Suspect]
     Indication: NEUROBLASTOMA
  2. CYCLOPHOSPHAMIDE [Suspect]
  3. VINCRISTINE [Suspect]
     Indication: NEUROBLASTOMA
  4. MONOCLONAL [Suspect]
     Indication: NEUROBLASTOMA
     Dosage: 20 MG/M2

REACTIONS (3)
  - Toxicity to various agents [None]
  - Vomiting [None]
  - Hypertension [None]
